FAERS Safety Report 9018737 (Version 2)
Quarter: 2013Q1

REPORT INFORMATION
  Report Type: Spontaneous
  Country: US (occurrence: US)
  Receive Date: 20130118
  Receipt Date: 20130313
  Transmission Date: 20140127
  Serious: Yes (Hospitalization, Other)
  Sender: FDA-Public Use
  Company Number: US-BAYER-2012-134867

PATIENT
  Age: 91 Year
  Sex: Female
  Weight: 49.9 kg

DRUGS (13)
  1. XARELTO [Suspect]
     Indication: ANTICOAGULANT THERAPY
     Dosage: 15 MG, QD
     Route: 048
     Dates: start: 20121102, end: 20121104
  2. XARELTO [Interacting]
     Indication: THROMBOSIS PROPHYLAXIS
  3. ACETYLSALICYLIC ACID({=100 MG) [Interacting]
     Indication: CARDIAC DISORDER
     Dosage: 81 MG, QD
  4. NORVASC [Concomitant]
     Indication: BLOOD PRESSURE MANAGEMENT
     Route: 065
  5. NORVASC [Concomitant]
     Indication: BLOOD PRESSURE MANAGEMENT
  6. RAMIPRIL [Concomitant]
     Indication: BLOOD PRESSURE MANAGEMENT
     Route: 065
  7. RAMIPRIL [Concomitant]
     Indication: BLOOD PRESSURE MANAGEMENT
     Route: 065
     Dates: start: 20120122
  8. PREDNISONE [Concomitant]
     Indication: PRODUCT USED FOR UNKNOWN INDICATION
     Route: 065
  9. PREDNISONE [Concomitant]
  10. VITAMINS [Concomitant]
     Indication: PRODUCT USED FOR UNKNOWN INDICATION
     Route: 065
  11. PRILOSEC [Concomitant]
     Indication: ULCER
     Route: 065
     Dates: start: 20121230
  12. VITAMIN D3 [Concomitant]
     Indication: PRODUCT USED FOR UNKNOWN INDICATION
     Route: 065
  13. VITAMIN D3 [Concomitant]
     Indication: PRODUCT USED FOR UNKNOWN INDICATION

REACTIONS (6)
  - Melaena [Recovering/Resolving]
  - Fear [Unknown]
  - Anxiety [Unknown]
  - Therapy cessation [Not Recovered/Not Resolved]
  - Gastric ulcer [Not Recovered/Not Resolved]
  - Anaemia [Unknown]
